FAERS Safety Report 9698880 (Version 1)
Quarter: 2013Q4

REPORT INFORMATION
  Report Type: Report from Study
  Country: US (occurrence: US)
  Receive Date: 20131120
  Receipt Date: 20131120
  Transmission Date: 20140711
  Serious: Yes (Other)
  Sender: FDA-Public Use
  Company Number: US-ASTRAZENECA-2013SE83674

PATIENT
  Age: 26 Year
  Sex: Female

DRUGS (2)
  1. LISINOPRIL [Suspect]
     Indication: FOCAL SEGMENTAL GLOMERULOSCLEROSIS
     Route: 048
  2. LISINOPRIL [Suspect]
     Indication: FOCAL SEGMENTAL GLOMERULOSCLEROSIS
     Route: 048

REACTIONS (3)
  - Ascites [Recovered/Resolved]
  - Small bowel angioedema [Recovered/Resolved]
  - Off label use [Unknown]
